FAERS Safety Report 6417867-8 (Version None)
Quarter: 2009Q4

REPORT INFORMATION
  Report Type: 
  Country: None (occurrence: None)
  Receive Date: 20091028
  Receipt Date: 20091023
  Transmission Date: 20100525
  Serious: Yes (Other)
  Sender: FDA-Public Use
  Company Number: A0808904A

PATIENT
  Age: 64 Year
  Sex: Female
  Weight: 54.5 kg

DRUGS (2)
  1. VALTREX [Suspect]
     Indication: HERPES ZOSTER
     Dosage: 1G THREE TIMES PER DAY
     Route: 048
  2. NEURONTIN [Suspect]
     Indication: POST HERPETIC NEURALGIA
     Dosage: 300MG TWICE PER DAY
     Route: 048
     Dates: start: 20090919, end: 20090921

REACTIONS (4)
  - DRUG HYPERSENSITIVITY [None]
  - EYE DISORDER [None]
  - EYE OEDEMA [None]
  - URTICARIA [None]
